FAERS Safety Report 7575521-3 (Version None)
Quarter: 2011Q2

REPORT INFORMATION
  Report Type: 
  Country: None (occurrence: None)
  Receive Date: 20110627
  Receipt Date: 20110613
  Transmission Date: 20111010
  Serious: Yes (Hospitalization, Other)
  Sender: FDA-Public Use
  Company Number: US-AMGEN-USASP2011026018

PATIENT
  Age: 32 Year
  Sex: Female
  Weight: 114.29 kg

DRUGS (3)
  1. ENBREL [Suspect]
     Indication: PSORIATIC ARTHROPATHY
     Dosage: 50 MG, QWK
     Route: 058
     Dates: start: 20041015, end: 20110415
  2. NORCO [Concomitant]
     Dosage: 10 MG, PRN
  3. ENBREL [Suspect]
     Indication: PSORIASIS

REACTIONS (8)
  - MENINGITIS ASEPTIC [None]
  - PHONOPHOBIA [None]
  - PHOTOPHOBIA [None]
  - HEADACHE [None]
  - NEUTROPENIA [None]
  - SYSTEMIC LUPUS ERYTHEMATOSUS [None]
  - NAUSEA [None]
  - VOMITING [None]
